FAERS Safety Report 13927193 (Version 1)
Quarter: 2017Q3

REPORT INFORMATION
  Report Type: Spontaneous
  Country: US (occurrence: US)
  Receive Date: 20170831
  Receipt Date: 20170831
  Transmission Date: 20171127
  Serious: Yes (Life-Threatening, Hospitalization)
  Sender: FDA-Public Use
  Company Number: None

PATIENT
  Age: 74 Year
  Sex: Female
  Weight: 49.05 kg

DRUGS (9)
  1. ARICEPT [Concomitant]
     Active Substance: DONEPEZIL HYDROCHLORIDE
  2. SEROQUEL [Concomitant]
     Active Substance: QUETIAPINE FUMARATE
  3. VITAMIN B12 [Concomitant]
     Active Substance: CYANOCOBALAMIN
  4. MELATONIN [Concomitant]
     Active Substance: MELATONIN
  5. ASPIRIN 81 MG [Concomitant]
     Active Substance: ASPIRIN
  6. CIMZIA [Suspect]
     Active Substance: CERTOLIZUMAB PEGOL
     Indication: RHEUMATOID ARTHRITIS
     Dosage: QUANTITY:1 INJECTION(S);OTHER FREQUENCY:LOADING DOSES+ MON;?
     Route: 030
     Dates: start: 20160201, end: 20160329
  7. TRAZODONE [Concomitant]
     Active Substance: TRAZODONE HYDROCHLORIDE
  8. VITAMIN D [Concomitant]
     Active Substance: CHOLECALCIFEROL
  9. INTEGRA [Concomitant]
     Active Substance: DIETARY SUPPLEMENT

REACTIONS (14)
  - Weight decreased [None]
  - Tobacco user [None]
  - Anaemia [None]
  - Colitis [None]
  - Mycobacterium tuberculosis complex test positive [None]
  - Nausea [None]
  - Clostridium difficile infection [None]
  - Mania [None]
  - Quality of life decreased [None]
  - Legal problem [None]
  - Pyromania [None]
  - Apparent death [None]
  - Asthenia [None]
  - Impaired driving ability [None]

NARRATIVE: CASE EVENT DATE: 20160201
